FAERS Safety Report 4649897-0 (Version None)
Quarter: 2005Q2

REPORT INFORMATION
  Report Type: 
  Country: None (occurrence: None)
  Receive Date: 20050428
  Receipt Date: 20050414
  Transmission Date: 20051028
  Serious: Yes (Hospitalization)
  Sender: FDA-Public Use
  Company Number: A-CH2005-09465

PATIENT
  Age: 26 Year
  Sex: Male

DRUGS (4)
  1. TRACLEER [Suspect]
     Indication: PULMONARY HYPERTENSION
     Dosage: SEE IMAGE
     Route: 048
     Dates: start: 20050401, end: 20050401
  2. TRACLEER [Suspect]
     Indication: PULMONARY HYPERTENSION
     Dosage: SEE IMAGE
     Route: 048
     Dates: end: 20050401
  3. TRACLEER [Suspect]
     Indication: PULMONARY HYPERTENSION
     Dosage: SEE IMAGE
     Route: 048
     Dates: start: 20031021
  4. HYDREA [Concomitant]

REACTIONS (5)
  - BRAIN ABSCESS [None]
  - COAGULATION FACTOR V LEVEL DECREASED [None]
  - COAGULOPATHY [None]
  - FACTOR V DEFICIENCY [None]
  - PLATELET COUNT DECREASED [None]
